FAERS Safety Report 9251781 (Version 4)
Quarter: 2013Q4

REPORT INFORMATION
  Report Type: Spontaneous
  Country: DE (occurrence: DE)
  Receive Date: 20130424
  Receipt Date: 20131015
  Transmission Date: 20140711
  Serious: Yes (Death, Hospitalization)
  Sender: FDA-Public Use
  Company Number: PHHY2013DE038691

PATIENT
  Sex: Female

DRUGS (2)
  1. GLIVEC [Suspect]
     Indication: GASTROINTESTINAL STROMAL TUMOUR
     Dosage: 400 MG, PER DAY
     Route: 048
     Dates: start: 201205, end: 20120910
  2. GLIVEC [Suspect]
     Dosage: 400 MG, PER DAY
     Route: 048
     Dates: start: 20120925, end: 20121004

REACTIONS (4)
  - Hepatic cirrhosis [Fatal]
  - Hepatic failure [Fatal]
  - Liver injury [Fatal]
  - Liver function test abnormal [Fatal]
